FAERS Safety Report 5575365-8 (Version None)
Quarter: 2007Q4

REPORT INFORMATION
  Report Type: 
  Country: None (occurrence: None)
  Receive Date: 20071227
  Receipt Date: 20071219
  Transmission Date: 20080405
  Serious: Yes (Other)
  Sender: FDA-Public Use
  Company Number: PHNU2007DE02717

PATIENT
  Age: 60 Year
  Sex: Female
  Weight: 80 kg

DRUGS (2)
  1. PRAVIDEL [Suspect]
     Indication: PROLACTINOMA
     Dosage: 10 MG/DAY
     Route: 048
     Dates: start: 20030101
  2. PRAVIDEL [Suspect]
     Dosage: 6.25 MG/DAY
     Route: 048

REACTIONS (3)
  - AORTIC VALVE SCLEROSIS [None]
  - HYPERCHOLESTEROLAEMIA [None]
  - SINUS BRADYCARDIA [None]
